FAERS Safety Report 4747741-4 (Version None)
Quarter: 2005Q3

REPORT INFORMATION
  Report Type: 
  Country: None (occurrence: None)
  Receive Date: 20050817
  Receipt Date: 20050817
  Transmission Date: 20060218
  Serious: Yes (Other)
  Sender: FDA-Public Use
  Company Number: None

PATIENT
  Age: 87 Year
  Sex: Male
  Weight: 81.6475 kg

DRUGS (8)
  1. ZYVOX [Suspect]
     Indication: ENTEROCOCCAL BACTERAEMIA
     Dosage: 600MG 1Q12HR INTRAVENOUS
     Route: 042
     Dates: start: 20050228, end: 20050323
  2. ZYVOX [Suspect]
     Indication: ENTEROCOCCAL SEPSIS
     Dosage: 600MG 1Q12HR INTRAVENOUS
     Route: 042
     Dates: start: 20050228, end: 20050323
  3. LEVAQUIN [Concomitant]
  4. FLAGYL [Concomitant]
  5. AZACTAM [Concomitant]
  6. BACTROBAN [Concomitant]
  7. PREVACID [Concomitant]
  8. SINEMET [Concomitant]

REACTIONS (1)
  - THROMBOCYTOPENIA [None]
